FAERS Safety Report 23850598 (Version 2)
Quarter: 2024Q3

REPORT INFORMATION
  Report Type: Report from Study
  Country: US (occurrence: US)
  Receive Date: 20240513
  Receipt Date: 20240708
  Transmission Date: 20241017
  Serious: Yes (Hospitalization, Other)
  Sender: ABBVIE
  Company Number: US-ABBVIE-5469080

PATIENT
  Age: 77 Year
  Sex: Male
  Weight: 74.842 kg

DRUGS (5)
  1. IMBRUVICA [Suspect]
     Active Substance: IBRUTINIB
     Indication: Waldenstrom^s macroglobulinaemia
     Route: 048
     Dates: start: 20220708, end: 20240412
  2. IMBRUVICA [Suspect]
     Active Substance: IBRUTINIB
     Indication: Waldenstrom^s macroglobulinaemia
     Dosage: LAST ADMIN DATE JUL 2022
     Route: 048
     Dates: start: 20220701
  3. IMBRUVICA [Suspect]
     Active Substance: IBRUTINIB
     Indication: Waldenstrom^s macroglobulinaemia
     Route: 048
     Dates: start: 20220708
  4. IMBRUVICA [Suspect]
     Active Substance: IBRUTINIB
     Indication: Waldenstrom^s macroglobulinaemia
     Route: 048
     Dates: start: 20220728
  5. ELIQUIS [Suspect]
     Active Substance: APIXABAN
     Indication: Product used for unknown indication
     Route: 065

REACTIONS (10)
  - Atrial fibrillation [Recovering/Resolving]
  - Contusion [Recovering/Resolving]
  - Malaise [Unknown]
  - Skin discolouration [Unknown]
  - Tachycardia [Unknown]
  - Thrombosis [Unknown]
  - Haemorrhagic diathesis [Unknown]
  - Sensitive skin [Unknown]
  - Blood viscosity decreased [Unknown]
  - Rash macular [Unknown]

NARRATIVE: CASE EVENT DATE: 20221001
